FAERS Safety Report 4511800-1 (Version None)
Quarter: 2004Q4

REPORT INFORMATION
  Report Type: 
  Country: None (occurrence: None)
  Receive Date: 20041123
  Receipt Date: 20041123
  Transmission Date: 20050328
  Serious: Yes (Other)
  Sender: FDA-Public Use
  Company Number: None

PATIENT
  Age: 79 Year
  Sex: Male
  Weight: 73.3 kg

DRUGS (15)
  1. ROPINIROLE [Suspect]
  2. NITROFURANTOIN MACROCRYSTALLINE [Concomitant]
  3. WARFARIN SODIUM [Concomitant]
  4. SULFAMETH/TRIMETHOPRIM [Concomitant]
  5. TERAZOSIN HCL [Concomitant]
  6. GALANTAMINE HYDROBROMIDE [Concomitant]
  7. ACETAMINOPHEN [Concomitant]
  8. TUBERCULIN PPD [Concomitant]
  9. CITALOPRAM [Concomitant]
  10. MILK OF MAGNESIA TAB [Concomitant]
  11. MULTI-VITAMIN [Concomitant]
  12. FINASTERIDE [Concomitant]
  13. FERROUS SULFATE TAB [Concomitant]
  14. DOCUSATE SODIUM [Concomitant]
  15. CALCIUM/VITAMIN D [Concomitant]

REACTIONS (1)
  - CONFUSIONAL STATE [None]
